FAERS Safety Report 23137000 (Version 2)
Quarter: 2023Q4

REPORT INFORMATION
  Report Type: Spontaneous
  Country: JP (occurrence: JP)
  Receive Date: 20231102
  Receipt Date: 20231117
  Transmission Date: 20240110
  Serious: Yes (Hospitalization)
  Sender: FDA-Public Use
  Company Number: JP-GSKCHJ-JPCH2023JPN052080AA

PATIENT

DRUGS (2)
  1. NICOTINELL [Suspect]
     Active Substance: NICOTINE
     Indication: Smoking cessation therapy
     Dosage: UNK
     Route: 050
     Dates: start: 202308, end: 2023
  2. NICOTINELL [Suspect]
     Active Substance: NICOTINE
     Dosage: UNK
     Route: 050
     Dates: start: 2023

REACTIONS (5)
  - Blood potassium decreased [Recovered/Resolved]
  - Mobility decreased [Recovered/Resolved]
  - Diarrhoea [Recovered/Resolved]
  - Treatment noncompliance [Unknown]
  - Therapy interrupted [Unknown]

NARRATIVE: CASE EVENT DATE: 20230101
